FAERS Safety Report 23364184 (Version 3)
Quarter: 2025Q4

REPORT INFORMATION
  Report Type: Report from Study
  Country: EU (occurrence: EU)
  Receive Date: 20240104
  Receipt Date: 20251113
  Transmission Date: 20260118
  Serious: Yes (Hospitalization)
  Sender: EMD SERONO INC
  Company Number: EU-Merck Healthcare KGaA-2023495306

PATIENT
  Age: 54 Year
  Sex: Male
  Weight: 73 kg

DRUGS (9)
  1. CLADRIBINE [Suspect]
     Active Substance: CLADRIBINE
     Indication: Relapsing multiple sclerosis
     Dosage: TEMPORARILY DISCONTINUED ON 27-DEC-2023?YEAR ONE MONTH ONE THERAPY
     Dates: start: 20231204, end: 20231208
  2. CARBAMAZEPINE [Concomitant]
     Active Substance: CARBAMAZEPINE
     Indication: Trigeminal nerve disorder
     Dosage: (TEGRETOL 200) HALF TABLET EVERY 4 HOUR
  3. CARBAMAZEPINE [Concomitant]
     Active Substance: CARBAMAZEPINE
     Dosage: (TEGRETOL 200 SLOW RELEASE) EVERY 4 HOUR
  4. ACYCLOVIR [Concomitant]
     Active Substance: ACYCLOVIR
     Indication: Prophylaxis
     Dates: start: 20231212
  5. BACTRIM [Concomitant]
     Active Substance: SULFAMETHOXAZOLE\TRIMETHOPRIM
     Indication: Prophylaxis
     Dates: start: 20231204, end: 20231212
  6. PIPERACILLIN [PIPERACILLIN SODIUM] [Concomitant]
     Indication: Product used for unknown indication
     Dates: start: 20231228, end: 20231231
  7. TAZOBACTAM [Concomitant]
     Active Substance: TAZOBACTAM
     Indication: Product used for unknown indication
     Dates: start: 20231228, end: 20231231
  8. MEROPENEM [Concomitant]
     Active Substance: MEROPENEM
     Indication: Product used for unknown indication
     Dates: start: 20240102, end: 20240108
  9. BETAHISTINE HYDROCHLORIDE [Concomitant]
     Active Substance: BETAHISTINE HYDROCHLORIDE
     Indication: Product used for unknown indication
     Dates: start: 202404, end: 202404

REACTIONS (2)
  - Loss of consciousness [Recovered/Resolved]
  - Fatigue [Recovering/Resolving]

NARRATIVE: CASE EVENT DATE: 20231206
